FAERS Safety Report 20980916 (Version 1)
Quarter: 2022Q2

REPORT INFORMATION
  Report Type: Spontaneous
  Country: CA (occurrence: None)
  Receive Date: 20220620
  Receipt Date: 20220620
  Transmission Date: 20220720
  Serious: Yes (Other)
  Sender: FDA-Public Use
  Company Number: CA-ROCHE-3118471

PATIENT
  Age: 64 Year
  Sex: Female

DRUGS (23)
  1. RITUXIMAB [Suspect]
     Active Substance: RITUXIMAB
     Indication: Rheumatoid arthritis
     Route: 042
  2. SPIRONOLACTONE [Concomitant]
     Active Substance: SPIRONOLACTONE
  3. ZAROXOLYN [Concomitant]
     Active Substance: METOLAZONE
  4. OXYGEN [Concomitant]
     Active Substance: OXYGEN
  5. AMLODIPINE [Concomitant]
     Active Substance: AMLODIPINE BESYLATE
  6. CALCIUM [Concomitant]
     Active Substance: CALCIUM
  7. METHYLPREDNISOLONE SODIUM SUCCINATE [Concomitant]
     Active Substance: METHYLPREDNISOLONE SODIUM SUCCINATE
     Indication: Premedication
     Route: 042
  8. TYLENOL [Concomitant]
     Active Substance: ACETAMINOPHEN
     Indication: Premedication
     Route: 048
  9. METOPROLOL [Concomitant]
     Active Substance: METOPROLOL
  10. DIGOXIN [Concomitant]
     Active Substance: DIGOXIN
  11. TIOTROPIUM BROMIDE MONOHYDRATE [Concomitant]
     Active Substance: TIOTROPIUM BROMIDE MONOHYDRATE
  12. LANTUS [Concomitant]
     Active Substance: INSULIN GLARGINE
     Route: 058
  13. ELIQUIS [Concomitant]
     Active Substance: APIXABAN
  14. TRAMADOL [Concomitant]
     Active Substance: TRAMADOL
  15. ERYTHROMYCIN [Concomitant]
     Active Substance: ERYTHROMYCIN
  16. FUROSEMIDE [Concomitant]
     Active Substance: FUROSEMIDE
  17. LASIX [Concomitant]
     Active Substance: FUROSEMIDE
  18. PANTOPRAZOLE [Concomitant]
     Active Substance: PANTOPRAZOLE
  19. HYDROXYCHLOROQUINE [Concomitant]
     Active Substance: HYDROXYCHLOROQUINE
  20. DIGOXIN [Concomitant]
     Active Substance: DIGOXIN
  21. LYRICA [Concomitant]
     Active Substance: PREGABALIN
  22. BENADRYL [Concomitant]
     Active Substance: DIPHENHYDRAMINE HYDROCHLORIDE
     Route: 048
  23. ZOPICLONE [Concomitant]
     Active Substance: ZOPICLONE

REACTIONS (1)
  - Renal failure [Unknown]
